FAERS Safety Report 19930186 (Version 6)
Quarter: 2023Q1

REPORT INFORMATION
  Report Type: Report from Study
  Country: US (occurrence: US)
  Receive Date: 20211007
  Receipt Date: 20230106
  Transmission Date: 20230417
  Serious: Yes (Hospitalization, Other)
  Sender: FDA-Public Use
  Company Number: US-TAKEDA-US202015061

PATIENT
  Age: 67 Year
  Sex: Female
  Weight: 104 kg

DRUGS (14)
  1. HUMAN IMMUNOGLOBULIN G [Suspect]
     Active Substance: HUMAN IMMUNOGLOBULIN G
     Indication: Primary immunodeficiency syndrome
     Dosage: 10 GRAM, 1/WEEK
     Route: 058
  2. CUVITRU [Suspect]
     Active Substance: HUMAN IMMUNOGLOBULIN G
     Indication: Primary immunodeficiency syndrome
     Dosage: 2 GRAM, 1/WEEK
     Route: 058
  3. CUVITRU [Suspect]
     Active Substance: HUMAN IMMUNOGLOBULIN G
     Indication: Immunodeficiency
     Dosage: 10 GRAM, 1/WEEK
     Route: 058
  4. CUVITRU [Suspect]
     Active Substance: HUMAN IMMUNOGLOBULIN G
     Dosage: 12 GRAM, QD
     Route: 058
  5. PREDNISONE [Concomitant]
     Active Substance: PREDNISONE
  6. CARDIZEM [Concomitant]
     Active Substance: DILTIAZEM HYDROCHLORIDE
     Indication: Blood pressure measurement
  7. COMBIVENT [Concomitant]
     Active Substance: ALBUTEROL SULFATE\IPRATROPIUM BROMIDE
     Dosage: UNK UNK, QD
     Route: 065
  8. BUDESONIDE\FORMOTEROL\GLYCOPYRRONIUM [Concomitant]
     Active Substance: BUDESONIDE\FORMOTEROL\GLYCOPYRRONIUM
  9. VITAMIN D [Concomitant]
     Active Substance: VITAMIN D NOS
  10. GABAPENTIN [Concomitant]
     Active Substance: GABAPENTIN
     Indication: Stenosis
  11. ALLOPURINOL [Concomitant]
     Active Substance: ALLOPURINOL
  12. FUROSEMIDE [Concomitant]
     Active Substance: FUROSEMIDE
  13. ZYRTEC [Concomitant]
     Active Substance: CETIRIZINE HYDROCHLORIDE
     Dosage: UNK UNK, QD
  14. DOXAZOSIN MESYLATE [Concomitant]
     Active Substance: DOXAZOSIN MESYLATE

REACTIONS (35)
  - Atypical pneumonia [Unknown]
  - Gait disturbance [Unknown]
  - Dyspnoea [Unknown]
  - Impaired healing [Unknown]
  - Oxygen saturation decreased [Unknown]
  - Feeling cold [Unknown]
  - Chills [Unknown]
  - Pain [Unknown]
  - Rash [Unknown]
  - Weight increased [Unknown]
  - Gout [Unknown]
  - Contusion [Unknown]
  - Peripheral swelling [Unknown]
  - Injection site swelling [Unknown]
  - Injection site mass [Not Recovered/Not Resolved]
  - Injection site pain [Unknown]
  - Pain in extremity [Unknown]
  - Condition aggravated [Unknown]
  - Blood immunoglobulin G abnormal [Unknown]
  - Blood immunoglobulin A decreased [Unknown]
  - Respiration abnormal [Unknown]
  - Illness [Unknown]
  - COVID-19 [Recovering/Resolving]
  - Pyrexia [Recovered/Resolved]
  - Fatigue [Unknown]
  - Influenza [Unknown]
  - Loss of personal independence in daily activities [Unknown]
  - Fluid intake reduced [Unknown]
  - Productive cough [Unknown]
  - Skin discolouration [Recovered/Resolved]
  - Skin induration [Recovered/Resolved]
  - Hypoaesthesia [Unknown]
  - Tremor [Unknown]
  - Inappropriate schedule of product administration [Unknown]
  - Incorrect drug administration rate [Unknown]

NARRATIVE: CASE EVENT DATE: 20190301
